FAERS Safety Report 24023433 (Version 1)
Quarter: 2024Q2

REPORT INFORMATION
  Report Type: Spontaneous
  Country: PL (occurrence: PL)
  Receive Date: 20240627
  Receipt Date: 20240627
  Transmission Date: 20240715
  Serious: Yes (Death, Hospitalization, Other)
  Sender: FDA-Public Use
  Company Number: PL-ASTELLAS-2024EU006268

PATIENT
  Age: 70 Year
  Sex: Male

DRUGS (2)
  1. TACROLIMUS [Suspect]
     Active Substance: TACROLIMUS
     Indication: Renal transplant
     Dosage: UNK UNK, UNKNOWN FREQ.
     Route: 065
  2. MYCOPHENOLATE MOFETIL [Concomitant]
     Active Substance: MYCOPHENOLATE MOFETIL
     Indication: Renal transplant
     Dosage: UNK UNK, UNKNOWN FREQ.
     Route: 065

REACTIONS (10)
  - Condition aggravated [Fatal]
  - Disseminated tuberculosis [Fatal]
  - Complications of transplanted kidney [Fatal]
  - Renal tuberculosis [Fatal]
  - Bone tuberculosis [Fatal]
  - Lymph node tuberculosis [Fatal]
  - Spleen tuberculosis [Fatal]
  - Pulmonary tuberculosis [Fatal]
  - Urosepsis [Unknown]
  - Infection [Unknown]
